FAERS Safety Report 19940012 (Version 2)
Quarter: 2021Q4

REPORT INFORMATION
  Report Type: Report from Study
  Country: JP (occurrence: JP)
  Receive Date: 20211012
  Receipt Date: 20211023
  Transmission Date: 20220303
  Serious: Yes (Hospitalization)
  Sender: FDA-Public Use
  Company Number: JP-REGENERON PHARMACEUTICALS, INC.-2021-92008

PATIENT

DRUGS (18)
  1. CEMIPLIMAB [Suspect]
     Active Substance: CEMIPLIMAB
     Indication: Lung squamous cell carcinoma stage IV
     Dosage: 350 MG, Q3W
     Route: 042
     Dates: start: 20210903, end: 20210903
  2. TRAMCET [Concomitant]
     Active Substance: ACETAMINOPHEN\TRAMADOL
     Indication: Cancer pain
     Dosage: 2 TABLET, QID
     Route: 048
     Dates: start: 20210726, end: 20210906
  3. LOXOPROFEN SODIUM [Concomitant]
     Active Substance: LOXOPROFEN SODIUM
     Indication: Cancer pain
     Dosage: 60 MG, TID
     Route: 048
     Dates: start: 20210726
  4. REBAMIPIDE [Concomitant]
     Active Substance: REBAMIPIDE
     Indication: Gastritis prophylaxis
     Dosage: 100 MG, TID
     Route: 048
     Dates: start: 20210726, end: 20210906
  5. ESOMEPRAZOLE MAGNESIUM [Concomitant]
     Active Substance: ESOMEPRAZOLE MAGNESIUM
     Indication: Gastritis prophylaxis
     Dosage: 10 MG, QD
     Route: 048
     Dates: start: 20210803
  6. CALCIUM CARBONATE\CHOLECALCIFEROL\MAGNESIUM CARBONATE [Concomitant]
     Active Substance: CALCIUM CARBONATE\CHOLECALCIFEROL\MAGNESIUM CARBONATE
     Indication: Hypocalcaemia
     Dosage: 2 TABLET, QD
     Route: 048
     Dates: start: 20210803
  7. DENOSUMAB [Concomitant]
     Active Substance: DENOSUMAB
     Indication: Metastases to bone
     Dosage: 120 MG, Q4W
     Route: 058
     Dates: start: 20210803
  8. AMLODIPINE [Concomitant]
     Active Substance: AMLODIPINE BESYLATE
     Indication: Hypertension
     Dosage: 5 MG, QD
     Route: 048
     Dates: start: 2011
  9. CANDESARTAN [Concomitant]
     Active Substance: CANDESARTAN
     Indication: Hypertension
     Dosage: 8 MG, QD
     Route: 048
     Dates: start: 2011
  10. CHONDROITIN SULFATE (BOVINE) [Concomitant]
     Active Substance: CHONDROITIN SULFATE (BOVINE)
     Indication: Erythema
     Dosage: 1 UNK, PRN
     Route: 062
     Dates: start: 20210902, end: 20210909
  11. CHONDROITIN SULFATE (BOVINE) [Concomitant]
     Active Substance: CHONDROITIN SULFATE (BOVINE)
     Indication: Erythema
     Dosage: 1 UNK, PRN
     Route: 062
     Dates: start: 20211001
  12. DIFLUPREDNATE [Concomitant]
     Active Substance: DIFLUPREDNATE
     Indication: Erythema
     Dosage: 1 UNK, PRN
     Route: 062
     Dates: start: 20210902, end: 20210909
  13. DIFLUPREDNATE [Concomitant]
     Active Substance: DIFLUPREDNATE
     Indication: Erythema
     Dosage: 1 UNK, PRN
     Route: 062
     Dates: start: 20211001
  14. FEXOFENADINE HYDROCHLORIDE [Concomitant]
     Active Substance: FEXOFENADINE HYDROCHLORIDE
     Indication: Erythema
     Dosage: 60 MG, BID
     Route: 048
     Dates: start: 20210903, end: 20210909
  15. BILASTINE [Concomitant]
     Active Substance: BILASTINE
     Indication: Erythema
     Dosage: 20 MG, QD
     Route: 048
     Dates: start: 20211001, end: 20211010
  16. MOMETASONE FUROATE [Concomitant]
     Active Substance: MOMETASONE FUROATE
     Indication: Erythema
     Dosage: 1 UNK, PRN
     Route: 062
     Dates: start: 20211001, end: 20211002
  17. HYDROCORTISONE BUTYRATE [Concomitant]
     Active Substance: HYDROCORTISONE BUTYRATE
     Indication: Erythema
     Dosage: 1 UNK, PRN
     Route: 062
     Dates: start: 20211003, end: 20211011
  18. BETAMETHASONE BUTYRATE PROPIONATE [Concomitant]
     Active Substance: BETAMETHASONE BUTYRATE PROPIONATE
     Indication: Erythema
     Dosage: 1 UNK, PRN
     Route: 062
     Dates: start: 20211003

REACTIONS (1)
  - Drug-induced liver injury [Recovering/Resolving]

NARRATIVE: CASE EVENT DATE: 20211005
